FAERS Safety Report 4673920-0 (Version None)
Quarter: 2005Q2

REPORT INFORMATION
  Report Type: 
  Country: None (occurrence: None)
  Receive Date: 20050523
  Receipt Date: 20050420
  Transmission Date: 20051028
  Serious: No
  Sender: FDA-Public Use
  Company Number: HQWYE327526APR05

PATIENT
  Sex: Female

DRUGS (1)
  1. ALAVERT D-12 (LORATADINE/PSEUDOEPHEDRINE SULFATE, TABLET, EXTENDED REL [Suspect]
     Dosage: 1 TABLET EVERY 12 HOURS, ORAL
     Route: 048

REACTIONS (1)
  - DRUG INEFFECTIVE [None]
